FAERS Safety Report 10410702 (Version 1)
Quarter: 2014Q3

REPORT INFORMATION
  Report Type: Spontaneous
  Country: US (occurrence: US)
  Receive Date: 20140826
  Receipt Date: 20140826
  Transmission Date: 20150326
  Serious: No
  Sender: FDA-Public Use
  Company Number: US-PFIZER INC-2014234268

PATIENT
  Age: 65 Year
  Sex: Female
  Weight: 82.09 kg

DRUGS (7)
  1. LISINOPRIL. [Concomitant]
     Active Substance: LISINOPRIL
     Indication: HYPERTENSION
     Dosage: 10 MG, 2X/DAY
  2. HYDROCHLOROTHIAZIDE. [Concomitant]
     Active Substance: HYDROCHLOROTHIAZIDE
     Indication: HYPERTENSION
     Dosage: 25 MG, DAILY
  3. METOPROLOL [Concomitant]
     Active Substance: METOPROLOL
     Dosage: 25 MG, DAILY
  4. TOVIAZ [Suspect]
     Active Substance: FESOTERODINE FUMARATE
     Dosage: 8 MG, DAILY
     Dates: start: 2014
  5. PREDNISONE. [Concomitant]
     Active Substance: PREDNISONE
     Dosage: 5 MG, DAILY
  6. TOVIAZ [Suspect]
     Active Substance: FESOTERODINE FUMARATE
     Indication: HYPERTONIC BLADDER
     Dosage: 4 MG, DAILY
     Dates: start: 2014
  7. BABY ASPIRIN [Concomitant]
     Active Substance: ASPIRIN
     Dosage: 81 MG, DAILY

REACTIONS (2)
  - Drug ineffective [Unknown]
  - Photopsia [Recovered/Resolved]

NARRATIVE: CASE EVENT DATE: 2014
